FAERS Safety Report 13553722 (Version 1)
Quarter: 2017Q2

REPORT INFORMATION
  Report Type: Spontaneous
  Country: GB (occurrence: GB)
  Receive Date: 20170517
  Receipt Date: 20170517
  Transmission Date: 20170830
  Serious: Yes (Hospitalization)
  Sender: FDA-Public Use
  Company Number: GB-PFIZER INC-2015337210

PATIENT
  Age: 24 Day
  Sex: Male
  Weight: 1.36 kg

DRUGS (2)
  1. CAFFEINE. [Concomitant]
     Active Substance: CAFFEINE
     Indication: INFANTILE APNOEA
     Dosage: 2.5 MG/KG, 1X/DAY
     Route: 048
  2. SODIUM CHLORIDE. [Suspect]
     Active Substance: SODIUM CHLORIDE
     Indication: HYPONATRAEMIA
     Dosage: 16.6 ML PER HOUR, 0.9 %
     Route: 042

REACTIONS (2)
  - Polyuria [Recovered/Resolved]
  - Blood sodium increased [Recovered/Resolved]
